FAERS Safety Report 7557675-8 (Version None)
Quarter: 2011Q2

REPORT INFORMATION
  Report Type: 
  Country: None (occurrence: None)
  Receive Date: 20110620
  Receipt Date: 20110610
  Transmission Date: 20111010
  Serious: Yes (Hospitalization, Congenital Anomaly)
  Sender: FDA-Public Use
  Company Number: US-JNJFOC-20091007839

PATIENT
  Sex: Male
  Weight: 3.49 kg

DRUGS (3)
  1. TOPAMAX [Suspect]
     Route: 064
     Dates: start: 20080515
  2. LAMICTAL [Suspect]
     Indication: DRUG EXPOSURE DURING PREGNANCY
     Route: 064
  3. TOPAMAX [Suspect]
     Indication: DRUG EXPOSURE DURING PREGNANCY
     Route: 064

REACTIONS (3)
  - CHORDEE [None]
  - CYST [None]
  - ANAEMIA [None]
